FAERS Safety Report 4376694-6 (Version None)
Quarter: 2004Q2

REPORT INFORMATION
  Report Type: 
  Country: None (occurrence: None)
  Receive Date: 20040608
  Receipt Date: 20040526
  Transmission Date: 20050107
  Serious: Yes (Death)
  Sender: FDA-Public Use
  Company Number: 04H-163-0262680-00

PATIENT
  Age: 77 Year
  Sex: Male

DRUGS (5)
  1. HYDROMORPHONE HCL [Suspect]
     Dosage: 0.5 MG, ONCE, INTRAVENOUS; SEE IMAGE
     Route: 042
     Dates: start: 20040505, end: 20040505
  2. HYDROMORPHONE HCL [Suspect]
     Dosage: 0.5 MG, ONCE, INTRAVENOUS; SEE IMAGE
     Route: 042
     Dates: start: 20040506, end: 20040606
  3. DILTIAZEM HYDROCHLORIDE [Concomitant]
  4. PROMETHAZINE HCL [Concomitant]
  5. PLASMA PROTEIN FRACTION (HUMAN) [Concomitant]

REACTIONS (7)
  - APNOEA [None]
  - BRAIN DEATH [None]
  - CARDIO-RESPIRATORY ARREST [None]
  - CYANOSIS [None]
  - HYPOXIA [None]
  - NAUSEA [None]
  - PCO2 INCREASED [None]
